FAERS Safety Report 4817746-3 (Version None)
Quarter: 2005Q3

REPORT INFORMATION
  Report Type: 
  Country: None (occurrence: None)
  Receive Date: 20050929
  Receipt Date: 20050531
  Transmission Date: 20060218
  Serious: No
  Sender: FDA-Public Use
  Company Number: 05P-163-0301926-00

PATIENT
  Age: 71 Year
  Sex: Female
  Weight: 69.8539 kg

DRUGS (11)
  1. HUMIRA [Suspect]
     Indication: RHEUMATOID ARTHRITIS
     Dosage: 40 MG, 1 IN 2 WK, SUBCUTANEOUS
     Route: 058
     Dates: start: 20050413
  2. CETIRIZINE HYDROCHLORIDE [Concomitant]
  3. FLUTICASONE PROPIONATE [Concomitant]
  4. METHOTREXATE [Concomitant]
  5. TRAMADOL HYDROCHLORIDE [Concomitant]
  6. NAPROXEN SODIUM [Concomitant]
  7. SERTRALINE HYDROCHLORIDE [Concomitant]
  8. TEMAZEPAM [Concomitant]
  9. FOLIC ACID [Concomitant]
  10. TOCOPHEROL CONCENTRATE CAP [Concomitant]
  11. VITAMIN B COMPLEX CAP [Concomitant]

REACTIONS (2)
  - COUGH [None]
  - RHINORRHOEA [None]
